FAERS Safety Report 6657334-X (Version None)
Quarter: 2010Q1

REPORT INFORMATION
  Report Type: 
  Country: None (occurrence: None)
  Receive Date: 20100325
  Receipt Date: 20100316
  Transmission Date: 20100710
  Serious: No
  Sender: FDA-Public Use
  Company Number: 2010030036

PATIENT
  Age: 55 Year
  Sex: Male

DRUGS (1)
  1. ONSOLIS [Suspect]
     Dosage: BU
     Route: 002

REACTIONS (2)
  - DRUG PRESCRIBING ERROR [None]
  - INTERCEPTED MEDICATION ERROR [None]
